FAERS Safety Report 8315781-4 (Version None)
Quarter: 2012Q2

REPORT INFORMATION
  Report Type: 
  Country: None (occurrence: None)
  Receive Date: 20120426
  Receipt Date: 20120413
  Transmission Date: 20120825
  Serious: Yes (Life-Threatening, Hospitalization)
  Sender: FDA-Public Use
  Company Number: ES-MYLANLABS-2012S1007979

PATIENT
  Age: 52 Year
  Sex: Male

DRUGS (8)
  1. RIBAVIRIN [Suspect]
     Indication: HEPATITIS C
     Route: 065
  2. PEGINTERFERON ALFA-2A [Suspect]
     Indication: HEPATITIS C
     Dosage: 180 MICROG/WEEK
     Route: 065
  3. OMEPRAZOLE [Concomitant]
     Indication: HYPERGASTRINAEMIA
     Dosage: 20 MG/24H
     Route: 065
  4. LORAZEPAM [Suspect]
     Dosage: DF = 1MG
     Route: 048
  5. CITALOPRAM HYDROBROMIDE [Concomitant]
     Indication: DEPRESSION
     Dosage: 40 MG/24H
     Route: 065
  6. LORAZEPAM [Suspect]
     Indication: DEPRESSION
     Dosage: 1 MG/24H
     Route: 065
  7. LORAZEPAM [Suspect]
     Dosage: DF = 1MG
     Route: 048
  8. LORAZEPAM [Suspect]
     Indication: SUICIDE ATTEMPT
     Dosage: 1 MG/24H
     Route: 065

REACTIONS (13)
  - DYSPNOEA [None]
  - CONJUNCTIVITIS [None]
  - INTENTIONAL OVERDOSE [None]
  - DRY MOUTH [None]
  - VISION BLURRED [None]
  - DEPRESSION [None]
  - COUGH [None]
  - SUICIDE ATTEMPT [None]
  - INFLUENZA LIKE ILLNESS [None]
  - SUICIDAL IDEATION [None]
  - HYPERHIDROSIS [None]
  - IRRITABILITY [None]
  - INSOMNIA [None]
